FAERS Safety Report 12649675 (Version 1)
Quarter: 2016Q3

REPORT INFORMATION
  Report Type: Spontaneous
  Country: US (occurrence: US)
  Receive Date: 20160812
  Receipt Date: 20160812
  Transmission Date: 20161109
  Serious: No
  Sender: FDA-Public Use
  Company Number: US-IMPAX LABORATORIES, INC-2015COR00193

PATIENT
  Age: 34 Year
  Sex: Male
  Weight: 113 kg

DRUGS (13)
  1. PROTEIN SHAKE [Concomitant]
     Dosage: UNK, AS NEEDED
  2. VYVANSE [Suspect]
     Active Substance: LISDEXAMFETAMINE DIMESYLATE
     Indication: SLEEP APNOEA SYNDROME
  3. MIXED AMPHETAMINE SALTS [Suspect]
     Active Substance: AMPHETAMINE ASPARTATE\AMPHETAMINE SULFATE\DEXTROAMPHETAMINE SACCHARATE\DEXTROAMPHETAMINE SULFATE
     Indication: SLEEP APNOEA SYNDROME
  4. DEXTROAMPHETAMINE SULFATE IR [Suspect]
     Active Substance: DEXTROAMPHETAMINE SULFATE
     Dosage: UNK UNK, 1X/DAY
     Route: 048
     Dates: start: 20150902, end: 201509
  5. METHYLPHENIDATE HYDROCHLORIDE IR [Suspect]
     Active Substance: METHYLPHENIDATE HYDROCHLORIDE
     Indication: NARCOLEPSY
     Dosage: UNK UNK, 1X/DAY
     Route: 048
     Dates: start: 201505
  6. METHYLPHENIDATE HYDROCHLORIDE IR [Suspect]
     Active Substance: METHYLPHENIDATE HYDROCHLORIDE
     Indication: EATING DISORDER
  7. VYVANSE [Suspect]
     Active Substance: LISDEXAMFETAMINE DIMESYLATE
     Indication: NARCOLEPSY
     Dosage: 50 MG, UNK
     Dates: start: 2015, end: 201505
  8. METHYLPHENIDATE HYDROCHLORIDE IR [Suspect]
     Active Substance: METHYLPHENIDATE HYDROCHLORIDE
     Indication: SLEEP APNOEA SYNDROME
  9. MIXED AMPHETAMINE SALTS [Suspect]
     Active Substance: AMPHETAMINE ASPARTATE\AMPHETAMINE SULFATE\DEXTROAMPHETAMINE SACCHARATE\DEXTROAMPHETAMINE SULFATE
     Indication: NARCOLEPSY
     Dosage: 30 MG, 1X/DAY
     Route: 048
     Dates: start: 201503
  10. ALEVE [Concomitant]
     Active Substance: NAPROXEN SODIUM
  11. MIXED AMPHETAMINE SALTS [Suspect]
     Active Substance: AMPHETAMINE ASPARTATE\AMPHETAMINE SULFATE\DEXTROAMPHETAMINE SACCHARATE\DEXTROAMPHETAMINE SULFATE
     Indication: EATING DISORDER
  12. VYVANSE [Suspect]
     Active Substance: LISDEXAMFETAMINE DIMESYLATE
     Indication: EATING DISORDER
  13. UNSPECIFIED ALLERGY MEDICATION [Concomitant]
     Active Substance: UNSPECIFIED INGREDIENT

REACTIONS (11)
  - Drug effect decreased [Recovering/Resolving]
  - Drug ineffective for unapproved indication [Not Recovered/Not Resolved]
  - Hyperphagia [None]
  - Product substitution issue [None]
  - Weight increased [Unknown]
  - Iron deficiency [Recovering/Resolving]
  - Fatigue [Recovering/Resolving]
  - Tongue coated [Recovering/Resolving]
  - Hypothyroidism [Unknown]
  - Increased appetite [Unknown]
  - Incorrect dose administered [None]

NARRATIVE: CASE EVENT DATE: 2015
